FAERS Safety Report 7892641-4 (Version None)
Quarter: 2011Q4

REPORT INFORMATION
  Report Type: 
  Country: None (occurrence: None)
  Receive Date: 20111102
  Receipt Date: 20111007
  Transmission Date: 20120403
  Serious: Yes (Hospitalization)
  Sender: FDA-Public Use
  Company Number: 2011PROUSA00694

PATIENT
  Age: 68 Year
  Sex: Male

DRUGS (6)
  1. PROVENGE [Suspect]
  2. PROVENGE [Suspect]
     Indication: PROSTATE CANCER METASTATIC
     Dosage: 250 ML, SINGLE, INTRAVENOUS
     Route: 042
     Dates: start: 20110513, end: 20110513
  3. PROVENGE [Suspect]
     Indication: PROSTATE CANCER METASTATIC
     Dosage: 250 ML, SINGLE, INTRAVENOUS
     Route: 042
     Dates: start: 20110610, end: 20110610
  4. PROVENGE [Suspect]
     Indication: PROSTATE CANCER METASTATIC
     Dosage: 250 ML, SINGLE, INTRAVENOUS
     Route: 042
     Dates: start: 20110527, end: 20110527
  5. TAXOL [Suspect]
     Indication: PROSTATE CANCER METASTATIC
  6. PROVENGE [Suspect]

REACTIONS (2)
  - SYNCOPE [None]
  - ACUTE RESPIRATORY DISTRESS SYNDROME [None]
